FAERS Safety Report 23958737 (Version 1)
Quarter: 2024Q2

REPORT INFORMATION
  Report Type: Spontaneous
  Country: GB (occurrence: GB)
  Receive Date: 20240610
  Receipt Date: 20240610
  Transmission Date: 20240715
  Serious: Yes (Other)
  Sender: FDA-Public Use
  Company Number: None

PATIENT
  Age: 29 Year
  Sex: Female

DRUGS (1)
  1. PENICILLIN G [Suspect]
     Active Substance: PENICILLIN G
     Indication: Product used for unknown indication
     Dosage: 3G LOADING DOSE
     Route: 065
     Dates: start: 20240608, end: 20240608

REACTIONS (6)
  - Hypotension [Recovered/Resolved]
  - Tachycardia [Recovered/Resolved]
  - Rash erythematous [Recovering/Resolving]
  - Pruritus [Recovered/Resolved]
  - Urticaria [Recovering/Resolving]
  - Maternal exposure during pregnancy [Unknown]

NARRATIVE: CASE EVENT DATE: 20240608
